FAERS Safety Report 13374543 (Version 1)
Quarter: 2017Q1

REPORT INFORMATION
  Report Type: Spontaneous
  Country: US (occurrence: US)
  Receive Date: 20170327
  Receipt Date: 20170327
  Transmission Date: 20170429
  Serious: No
  Sender: FDA-Public Use
  Company Number: US-HILL DERMACEUTICALS, INC.-1064695

PATIENT
  Age: 74 Year
  Sex: Female

DRUGS (4)
  1. DERMA-SMOOTHE/FS [Suspect]
     Active Substance: FLUOCINOLONE ACETONIDE
     Indication: SCAB
     Route: 061
     Dates: start: 20160505
  2. PLAVIX [Concomitant]
     Active Substance: CLOPIDOGREL BISULFATE
     Route: 048
  3. SYNTHROID [Concomitant]
     Active Substance: LEVOTHYROXINE SODIUM
     Route: 048
  4. VITAMINS [Concomitant]
     Active Substance: VITAMINS

REACTIONS (3)
  - Confusional state [Recovered/Resolved]
  - Euphoric mood [Recovered/Resolved]
  - Balance disorder [Recovered/Resolved]
